FAERS Safety Report 9457552 (Version 1)
Quarter: 2013Q3

REPORT INFORMATION
  Report Type: Spontaneous
  Country: US (occurrence: None)
  Receive Date: 20130812
  Receipt Date: 20130812
  Transmission Date: 20140515
  Serious: Yes (Other)
  Sender: FDA-Public Use
  Company Number: None

PATIENT
  Age: 19 Year
  Sex: Female
  Weight: 61.24 kg

DRUGS (1)
  1. IMPLANON [Suspect]
     Indication: MENSTRUAL DISORDER
     Dates: start: 20110728, end: 20130809

REACTIONS (5)
  - Mood swings [None]
  - Crying [None]
  - Menstrual disorder [None]
  - Dyspareunia [None]
  - Muscle spasms [None]
